FAERS Safety Report 7126363-4 (Version None)
Quarter: 2010Q4

REPORT INFORMATION
  Report Type: 
  Country: None (occurrence: None)
  Receive Date: 20101129
  Receipt Date: 20101122
  Transmission Date: 20110411
  Serious: Yes (Life-Threatening, Hospitalization, Other)
  Sender: FDA-Public Use
  Company Number: US-ELI_LILLY_AND_COMPANY-US201006004734

PATIENT
  Sex: Male
  Weight: 111 kg

DRUGS (11)
  1. BYETTA [Suspect]
     Indication: DIABETES MELLITUS
     Dosage: 5 UG, 2/D
     Route: 058
     Dates: start: 20070101, end: 20070101
  2. BYETTA [Suspect]
     Dosage: 10 UG, 2/D
     Route: 058
     Dates: start: 20070101
  3. BYETTA [Suspect]
     Dosage: 10 UG, 2/D
     Route: 058
  4. AMLODIPINE [Concomitant]
     Dosage: 10 MG, DAILY (1/D)
  5. METFORMIN [Concomitant]
     Dosage: 1000 MG, AS NEEDED
  6. LIPITOR [Concomitant]
     Dosage: 40 MG, DAILY (1/D)
  7. GLYBURIDE [Concomitant]
     Dosage: 20 MG, 2/D
  8. HYDROCHLOROTHIAZIDE [Concomitant]
     Dosage: 20 MG, DAILY (1/D)
  9. ASPIRIN [Concomitant]
     Dosage: 80 MG, DAILY (1/D)
  10. TRAMADOL HCL [Concomitant]
     Dosage: 50 MG, AS NEEDED
  11. AMITRIPTYLINE [Concomitant]
     Dates: start: 20100209

REACTIONS (14)
  - ABASIA [None]
  - BLOOD GLUCOSE DECREASED [None]
  - BLOOD GLUCOSE INCREASED [None]
  - BLOOD POTASSIUM INCREASED [None]
  - BLOOD PRESSURE DECREASED [None]
  - CONSTIPATION [None]
  - CORONARY ARTERY OCCLUSION [None]
  - DRUG DOSE OMISSION [None]
  - FALL [None]
  - HEART RATE DECREASED [None]
  - LIMB INJURY [None]
  - MYOCARDIAL INFARCTION [None]
  - ROAD TRAFFIC ACCIDENT [None]
  - VISUAL IMPAIRMENT [None]
